FAERS Safety Report 9411495 (Version 1)
Quarter: 2013Q3

REPORT INFORMATION
  Report Type: Spontaneous
  Country: US (occurrence: None)
  Receive Date: 20130718
  Receipt Date: 20130718
  Transmission Date: 20140515
  Serious: No
  Sender: FDA-Public Use
  Company Number: None

PATIENT
  Age: 50 Year
  Sex: Male
  Weight: 90.72 kg

DRUGS (1)
  1. CLONIDINE [Suspect]
     Indication: BLOOD PRESSURE ABNORMAL
     Dosage: 1X PER WEEK
     Dates: start: 20130316, end: 20130322

REACTIONS (4)
  - Dizziness [None]
  - Disorientation [None]
  - Tremor [None]
  - Blood pressure decreased [None]
